FAERS Safety Report 5833333-2 (Version None)
Quarter: 2008Q3

REPORT INFORMATION
  Report Type: 
  Country: None (occurrence: None)
  Receive Date: 20080722
  Receipt Date: 20071005
  Transmission Date: 20090109
  Serious: Yes (Hospitalization)
  Sender: FDA-Public Use
  Company Number: 2007BI009792

PATIENT
  Age: 53 Year
  Sex: Female
  Weight: 97.5234 kg

DRUGS (6)
  1. AVONEX [Suspect]
     Indication: MULTIPLE SCLEROSIS
     Dosage: 30 UG;QW;IM
     Route: 030
     Dates: start: 19960101, end: 20030101
  2. AVONEX [Suspect]
     Indication: MULTIPLE SCLEROSIS
     Dosage: 30 UG;QW;IM
     Route: 030
     Dates: start: 20030101
  3. OXYBUTININ [Concomitant]
  4. DIAZEPAM [Concomitant]
  5. SERPRALINE [Concomitant]
  6. AZATHIOPRINE [Concomitant]

REACTIONS (12)
  - BLADDER SPASM [None]
  - DIABETES MELLITUS [None]
  - GASTROINTESTINAL PAIN [None]
  - HYPERTENSION [None]
  - HYPOAESTHESIA [None]
  - LACRIMATION INCREASED [None]
  - MULTIPLE SCLEROSIS RELAPSE [None]
  - NERVE INJURY [None]
  - OCULAR HYPERAEMIA [None]
  - PARAESTHESIA [None]
  - RASH ERYTHEMATOUS [None]
  - SLEEP DISORDER [None]
